FAERS Safety Report 6013363-0 (Version None)
Quarter: 2008Q4

REPORT INFORMATION
  Report Type: 
  Country: None (occurrence: None)
  Receive Date: 20081219
  Receipt Date: 20081216
  Transmission Date: 20090506
  Serious: Yes (Death)
  Sender: FDA-Public Use
  Company Number: US-KINGPHARMUSA00001-K200801420

PATIENT
  Age: 40 Year
  Sex: Female

DRUGS (7)
  1. SEPTRA [Suspect]
     Dosage: UNK
     Route: 048
  2. DIDANOSINE [Suspect]
     Dosage: UNK
     Route: 048
  3. RITONAVIR [Suspect]
     Dosage: UNK
     Route: 048
  4. ATAZANAVIR SULFATE [Suspect]
     Dosage: UNK
     Route: 048
  5. EMTRICITABINE W/TENOFOVIR [Suspect]
     Dosage: UNK
     Route: 048
  6. BUTALBITAL ACETAMINOPHEN AND CAFFEINE [Suspect]
     Dosage: UNK
     Route: 048
  7. HYDROMORPHONE HCL [Suspect]
     Dosage: UNK
     Route: 048

REACTIONS (1)
  - COMPLETED SUICIDE [None]
